FAERS Safety Report 9716599 (Version 1)
Quarter: 2013Q4

REPORT INFORMATION
  Report Type: Spontaneous
  Country: US (occurrence: US)
  Receive Date: 20131127
  Receipt Date: 20131127
  Transmission Date: 20140711
  Serious: No
  Sender: FDA-Public Use
  Company Number: US-PFIZER INC-2013335399

PATIENT
  Sex: Female

DRUGS (1)
  1. CYTOMEL [Suspect]
     Indication: THYROID DISORDER
     Dosage: 25 UG, 1X/DAY
     Dates: start: 2007

REACTIONS (4)
  - Body temperature decreased [Recovered/Resolved]
  - Weight increased [Unknown]
  - Malaise [Unknown]
  - Drug ineffective [Unknown]
